FAERS Safety Report 8866063 (Version 2)
Quarter: 2012Q4

REPORT INFORMATION
  Report Type: Report from Study
  Country: AU (occurrence: AU)
  Receive Date: 20121025
  Receipt Date: 20121113
  Transmission Date: 20130627
  Serious: Yes (Hospitalization)
  Sender: FDA-Public Use
  Company Number: AU-JNJFOC-20121009999

PATIENT
  Age: 54 Year
  Sex: Female

DRUGS (1)
  1. SIMPONI [Suspect]
     Indication: RHEUMATOID ARTHRITIS
     Route: 058
     Dates: start: 20121015

REACTIONS (4)
  - Chest discomfort [Unknown]
  - Dizziness [Unknown]
  - Abdominal distension [Not Recovered/Not Resolved]
  - Eructation [Not Recovered/Not Resolved]
